FAERS Safety Report 6553035-7 (Version None)
Quarter: 2010Q1

REPORT INFORMATION
  Report Type: 
  Country: None (occurrence: None)
  Receive Date: 20100122
  Receipt Date: 20091207
  Transmission Date: 20100710
  Serious: No
  Sender: FDA-Public Use
  Company Number: 20107968

PATIENT
  Age: 46 Year
  Sex: Male

DRUGS (1)
  1. LIORESAL [Suspect]
     Indication: MUSCLE SPASTICITY
     Dosage: MCG, DAILY, INTRATHECAL
     Route: 037

REACTIONS (6)
  - BURNS THIRD DEGREE [None]
  - IMPLANT SITE INFECTION [None]
  - MEDICAL DEVICE COMPLICATION [None]
  - MUSCLE SPASTICITY [None]
  - SKIN DISORDER [None]
  - WEIGHT DECREASED [None]
